FAERS Safety Report 8581726-5 (Version None)
Quarter: 2012Q2

REPORT INFORMATION
  Report Type: 
  Country: None (occurrence: None)
  Receive Date: 20120423
  Receipt Date: 20100824
  Transmission Date: 20120825
  Serious: Yes (Death)
  Sender: FDA-Public Use
  Company Number: PHHY2010US48413

PATIENT
  Age: 90 Year
  Sex: Male

DRUGS (2)
  1. REVLIMID [Concomitant]
  2. EXJADE [Suspect]
     Indication: BLOOD TEST ABNORMAL
     Dosage: 1500 MG, QD, ORAL
     Route: 048
     Dates: end: 20080101

REACTIONS (1)
  - NEOPLASM MALIGNANT [None]
